FAERS Safety Report 5303779-X (Version None)
Quarter: 2007Q1

REPORT INFORMATION
  Report Type: 
  Country: None (occurrence: None)
  Receive Date: 20070201
  Receipt Date: 20061122
  Transmission Date: 20070707
  Serious: No
  Sender: FDA-Public Use
  Company Number: 2006PV025771

PATIENT
  Age: 50 Year
  Sex: Female
  Weight: 73.9363 kg

DRUGS (4)
  1. BYETTA [Suspect]
     Indication: DIABETES MELLITUS NON-INSULIN-DEPENDENT
     Dosage: 5 MCG;BID;SC
     Route: 058
     Dates: start: 20061118
  2. AMARYL [Concomitant]
  3. FORTAMET [Concomitant]
  4. KLONOPIN [Concomitant]

REACTIONS (2)
  - DRUG EFFECT DECREASED [None]
  - INSOMNIA [None]
